FAERS Safety Report 15507461 (Version 1)
Quarter: 2018Q4

REPORT INFORMATION
  Report Type: Spontaneous
  Country: DE (occurrence: DE)
  Receive Date: 20181016
  Receipt Date: 20181016
  Transmission Date: 20190205
  Serious: Yes (Other)
  Sender: FDA-Public Use
  Company Number: DE-PFIZER INC-2018413201

PATIENT
  Sex: Male

DRUGS (5)
  1. LEFLUNOMID [Suspect]
     Active Substance: LEFLUNOMIDE
     Indication: PSORIATIC ARTHROPATHY
     Dosage: UNK
     Dates: start: 201509, end: 201511
  2. METHOTREXATE SODIUM. [Suspect]
     Active Substance: METHOTREXATE SODIUM
     Dosage: 15 MG, WEEKLY
     Dates: start: 201506, end: 201509
  3. LEFLUNOMID [Suspect]
     Active Substance: LEFLUNOMIDE
     Dosage: UNK
     Dates: start: 201607, end: 201612
  4. DICLOFENAC RESINATE [Suspect]
     Active Substance: DICLOFENAC
     Dosage: UNK
     Dates: start: 2015
  5. CELECOXIB. [Suspect]
     Active Substance: CELECOXIB
     Dosage: 100 MG, 2X/DAY
     Dates: start: 201509, end: 201511

REACTIONS (4)
  - Diarrhoea [Unknown]
  - Nausea [Unknown]
  - Psoriatic arthropathy [Unknown]
  - Transaminases increased [Unknown]

NARRATIVE: CASE EVENT DATE: 2015
